FAERS Safety Report 19216181 (Version 1)
Quarter: 2021Q2

REPORT INFORMATION
  Report Type: Spontaneous
  Country: CA (occurrence: CA)
  Receive Date: 20210505
  Receipt Date: 20210505
  Transmission Date: 20210717
  Serious: Yes (Hospitalization)
  Sender: FDA-Public Use
  Company Number: CA-TEVA-2021-CA-1907342

PATIENT
  Sex: Male

DRUGS (1)
  1. LAMOTRIGINE. [Suspect]
     Active Substance: LAMOTRIGINE
     Route: 065

REACTIONS (5)
  - Stevens-Johnson syndrome [Unknown]
  - Blepharitis [Unknown]
  - Oral pain [Unknown]
  - Toxic epidermal necrolysis [Unknown]
  - Rash [Unknown]
